FAERS Safety Report 10055830 (Version 1)
Quarter: 2014Q2

REPORT INFORMATION
  Report Type: Spontaneous
  Country: IN (occurrence: IN)
  Receive Date: 20140403
  Receipt Date: 20140403
  Transmission Date: 20141212
  Serious: Yes (Other)
  Sender: FDA-Public Use
  Company Number: IN-009507513-1403IND014083

PATIENT
  Age: 63 Year
  Sex: Male

DRUGS (1)
  1. JANUVIA [Suspect]
     Indication: DIABETES MELLITUS
     Dosage: 1 TABLET, QD
     Route: 048

REACTIONS (3)
  - Sexual dysfunction [Not Recovered/Not Resolved]
  - Acidosis [Not Recovered/Not Resolved]
  - Pollakiuria [Not Recovered/Not Resolved]
